FAERS Safety Report 6078338-4 (Version None)
Quarter: 2009Q1

REPORT INFORMATION
  Report Type: 
  Country: None (occurrence: None)
  Receive Date: 20090213
  Receipt Date: 20090205
  Transmission Date: 20090719
  Serious: Yes (Death, Hospitalization)
  Sender: FDA-Public Use
  Company Number: US-JNJFOC-20090202649

PATIENT
  Age: 80 Year
  Sex: Female
  Weight: 76.2 kg

DRUGS (15)
  1. REMICADE [Suspect]
     Indication: PSORIATIC ARTHROPATHY
     Route: 042
  2. METHOTREXATE [Suspect]
     Indication: PSORIATIC ARTHROPATHY
  3. TUMS [Concomitant]
  4. LODINE [Concomitant]
  5. LEVOXYL [Concomitant]
     Route: 048
  6. AMITRIPTYLINE HCL [Concomitant]
  7. METHYLPREDNISOLONE 4MG TAB [Concomitant]
     Route: 048
  8. VITAMIN E [Concomitant]
     Route: 048
  9. FOLIC ACID [Concomitant]
  10. CENTRUM SILVER [Concomitant]
     Route: 048
  11. DITROPAN XL [Concomitant]
     Route: 048
  12. HYDROCHLOROTHIAZIDE [Concomitant]
  13. COZAAR [Concomitant]
     Route: 048
  14. ATENOLOL [Concomitant]
  15. EVISTA [Concomitant]

REACTIONS (4)
  - HISTOPLASMOSIS [None]
  - LEUKOPENIA [None]
  - SEPSIS [None]
  - THROMBOCYTOPENIA [None]
